FAERS Safety Report 20795066 (Version 2)
Quarter: 2023Q2

REPORT INFORMATION
  Report Type: Spontaneous
  Country: US (occurrence: US)
  Receive Date: 20220506
  Receipt Date: 20230531
  Transmission Date: 20230722
  Serious: No
  Sender: FDA-Public Use
  Company Number: US-UCBSA-2021037627

PATIENT
  Sex: Female

DRUGS (1)
  1. CIMZIA [Suspect]
     Active Substance: CERTOLIZUMAB PEGOL
     Indication: Psoriasis
     Dosage: 400 MILLIGRAM, EV 4 WEEKS
     Route: 058
     Dates: start: 202102

REACTIONS (7)
  - Hyperhidrosis [Unknown]
  - Chills [Unknown]
  - Dyspnoea [Unknown]
  - Anxiety [Unknown]
  - Cough [Unknown]
  - Dysuria [Unknown]
  - Hepatic enzyme increased [Unknown]
